FAERS Safety Report 5636401-3 (Version None)
Quarter: 2008Q1

REPORT INFORMATION
  Report Type: 
  Country: None (occurrence: None)
  Receive Date: 20080225
  Receipt Date: 20071207
  Transmission Date: 20080703
  Serious: No
  Sender: FDA-Public Use
  Company Number: A0697938A

PATIENT
  Age: 76 Year
  Sex: Female

DRUGS (8)
  1. VERAMYST [Suspect]
     Route: 045
     Dates: start: 20071206
  2. ASMANEX TWISTHALER [Concomitant]
  3. FORADIL [Concomitant]
  4. ALBUTEROL [Concomitant]
  5. ATROVENT [Concomitant]
  6. RANITIDINE [Concomitant]
  7. HYDROCHLOROTHIAZIDE [Concomitant]
  8. ESTRADIOL [Concomitant]

REACTIONS (1)
  - DIZZINESS [None]
